FAERS Safety Report 8480920-1 (Version None)
Quarter: 2012Q2

REPORT INFORMATION
  Report Type: 
  Country: None (occurrence: None)
  Receive Date: 20120622
  Receipt Date: 20120613
  Transmission Date: 20120825
  Serious: Yes (Other)
  Sender: FDA-Public Use
  Company Number: 2012SP032682

PATIENT
  Age: 49 Year
  Sex: Male
  Weight: 63 kg

DRUGS (24)
  1. CONFATANIN [Concomitant]
  2. REBETOL [Suspect]
     Indication: HEPATITIS C
     Dosage: SEE IMAGE
     Route: 048
     Dates: start: 20120323, end: 20120330
  3. REBETOL [Suspect]
     Indication: HEPATITIS C
     Dosage: SEE IMAGE
     Route: 048
     Dates: start: 20120216, end: 20120315
  4. REBETOL [Suspect]
     Indication: HEPATITIS C
     Dosage: SEE IMAGE
     Route: 048
     Dates: start: 20120316, end: 20120322
  5. REBETOL [Suspect]
     Indication: HEPATITIS C
     Dosage: SEE IMAGE
     Route: 048
     Dates: start: 20120406, end: 20120511
  6. REBETOL [Suspect]
     Indication: HEPATITIS C
     Dosage: SEE IMAGE
     Route: 048
     Dates: start: 20120512
  7. PEG-INTRON [Suspect]
     Indication: HEPATITIS C
     Dosage: SEE IMAGE
     Route: 058
     Dates: start: 20120330
  8. PEG-INTRON [Suspect]
     Indication: HEPATITIS C
     Dosage: SEE IMAGE
     Route: 058
     Dates: start: 20120316, end: 20120329
  9. PEG-INTRON [Suspect]
     Indication: HEPATITIS C
     Dosage: SEE IMAGE
     Route: 058
     Dates: start: 20120420, end: 20120504
  10. PEG-INTRON [Suspect]
     Indication: HEPATITIS C
     Dosage: SEE IMAGE
     Route: 058
     Dates: start: 20120216, end: 20120301
  11. PEG-INTRON [Suspect]
     Indication: HEPATITIS C
     Dosage: SEE IMAGE
     Route: 058
     Dates: start: 20120413, end: 20120413
  12. PEG-INTRON [Suspect]
     Indication: HEPATITIS C
     Dosage: SEE IMAGE
     Route: 058
     Dates: start: 20120330, end: 20120406
  13. PEG-INTRON [Suspect]
     Indication: HEPATITIS C
     Dosage: SEE IMAGE
     Route: 058
     Dates: start: 20120511, end: 20120518
  14. PEG-INTRON [Suspect]
     Indication: HEPATITIS C
     Dosage: SEE IMAGE
     Route: 058
     Dates: start: 20120302, end: 20120315
  15. TELAVIC (ANTIVIRALS NOS) [Suspect]
     Indication: HEPATITIS C
     Dosage: 2250 MG;QD;PO, 1500 MG;QD;PO, 1500 MG;QD;PO
     Route: 048
     Dates: start: 20120323, end: 20120330
  16. TELAVIC (ANTIVIRALS NOS) [Suspect]
     Indication: HEPATITIS C
     Dosage: 2250 MG;QD;PO, 1500 MG;QD;PO, 1500 MG;QD;PO
     Route: 048
     Dates: start: 20120216, end: 20120322
  17. TELAVIC (ANTIVIRALS NOS) [Suspect]
     Indication: HEPATITIS C
     Dosage: 2250 MG;QD;PO, 1500 MG;QD;PO, 1500 MG;QD;PO
     Route: 048
     Dates: start: 20120406, end: 20120510
  18. CONFATANIN [Concomitant]
  19. ISODINE [Concomitant]
  20. POSTERISAN FORTE [Concomitant]
  21. LANIZAC [Concomitant]
  22. ACUATIM [Concomitant]
  23. CEFDINIR [Concomitant]
  24. CLOBETASOL PROPIONATE [Concomitant]

REACTIONS (25)
  - NAUSEA [None]
  - FOLLICULITIS [None]
  - INFLAMMATION [None]
  - HYPERURICAEMIA [None]
  - PYREXIA [None]
  - RASH [None]
  - FEELING HOT [None]
  - PROCTALGIA [None]
  - DIARRHOEA [None]
  - MALAISE [None]
  - CATARACT [None]
  - WHITE BLOOD CELL COUNT DECREASED [None]
  - GINGIVITIS [None]
  - ABDOMINAL DISCOMFORT [None]
  - PAIN [None]
  - PAIN IN JAW [None]
  - HAEMOGLOBIN DECREASED [None]
  - HYPOGEUSIA [None]
  - STOMATITIS [None]
  - GOUT [None]
  - ARTHRALGIA [None]
  - PRURITUS [None]
  - PLATELET COUNT DECREASED [None]
  - DEPRESSION [None]
  - SWELLING FACE [None]
